FAERS Safety Report 7203529-6 (Version None)
Quarter: 2010Q4

REPORT INFORMATION
  Report Type: 
  Country: None (occurrence: None)
  Receive Date: 20101220
  Receipt Date: 20101213
  Transmission Date: 20110411
  Serious: Yes (Other)
  Sender: FDA-Public Use
  Company Number: TRP_07383_2010

PATIENT
  Sex: Male
  Weight: 84.369 kg

DRUGS (2)
  1. RIBAVIRIN [Suspect]
     Indication: HEPATITIS C
     Dosage: 1000 MG (600 MG QAM AND 400 MG QPM) ORAL
     Route: 048
     Dates: start: 20090810, end: 20100209
  2. PEGYLATED INTERFERON ALFA-2A 180 UG [Suspect]
     Indication: HEPATITIS C
     Dosage: 180 UG 1X/WEEK SUBCUTANEOUS
     Route: 058
     Dates: start: 20090810, end: 20100209

REACTIONS (21)
  - ANAEMIA [None]
  - ANXIETY [None]
  - APATHY [None]
  - ARTHRALGIA [None]
  - ASTHENIA [None]
  - DEPRESSION [None]
  - DRY MOUTH [None]
  - DRY SKIN [None]
  - IRRITABILITY [None]
  - METASTASES TO CENTRAL NERVOUS SYSTEM [None]
  - MYALGIA [None]
  - NASAL CONGESTION [None]
  - NEUTROPENIA [None]
  - PINGUECULA [None]
  - PRURITUS [None]
  - RETINAL EXUDATES [None]
  - RETINAL HAEMORRHAGE [None]
  - RETINOPATHY [None]
  - SMALL CELL LUNG CANCER METASTATIC [None]
  - THROMBOCYTOPENIA [None]
  - WEIGHT DECREASED [None]
